FAERS Safety Report 7034170-6 (Version None)
Quarter: 2010Q4

REPORT INFORMATION
  Report Type: 
  Country: None (occurrence: None)
  Receive Date: 20101008
  Receipt Date: 20101005
  Transmission Date: 20110411
  Serious: Yes (Hospitalization)
  Sender: FDA-Public Use
  Company Number: GXKR2009DE02641

PATIENT
  Age: 79 Year
  Sex: Male
  Weight: 58 kg

DRUGS (11)
  1. RAMIPRIL (NGX) [Suspect]
     Indication: HYPERTENSION
     Dosage: 1.25 MG, QD
     Route: 048
     Dates: end: 20080620
  2. TORSEMIDE [Suspect]
     Indication: HYPERTENSION
     Dosage: 10 MG, QD
     Route: 048
     Dates: end: 20080620
  3. XIPAMIDE (NGX) [Suspect]
     Indication: HYPERTENSION
     Dosage: 5 MG, QD
     Route: 048
     Dates: end: 20080620
  4. ALDACTONE [Suspect]
     Indication: CARDIAC FAILURE
     Dosage: 25 MG, QD
     Route: 048
     Dates: end: 20080620
  5. FALITHROM (NGX) [Concomitant]
     Indication: CARDIAC FAILURE
     Dosage: UNK
     Route: 048
     Dates: end: 20080620
  6. ALLOPURINOL [Concomitant]
     Route: 048
  7. METAMIZOL NATRIUM [Concomitant]
     Route: 048
  8. METOCLOPRAMIDE [Concomitant]
     Route: 048
  9. PANTOPRAZOLE SODIUM [Concomitant]
     Route: 048
  10. RISPERIDONE [Concomitant]
     Route: 048
  11. SIMVASTATIN [Concomitant]
     Route: 048

REACTIONS (3)
  - HYPOKALAEMIA [None]
  - HYPONATRAEMIA [None]
  - SYNCOPE [None]
